FAERS Safety Report 5061689-X (Version None)
Quarter: 2006Q3

REPORT INFORMATION
  Report Type: 
  Country: None (occurrence: None)
  Receive Date: 20060726
  Receipt Date: 20060622
  Transmission Date: 20061208
  Serious: Yes (Hospitalization, Other)
  Sender: FDA-Public Use
  Company Number: PHEH2006US08219

PATIENT
  Age: 76 Year
  Sex: Male
  Weight: 80.725 kg

DRUGS (2)
  1. ZOMETA [Suspect]
     Indication: MULTIPLE MYELOMA
     Dosage: 4 MG Q4WK
     Dates: start: 20030501, end: 20041201
  2. AREDIA [Suspect]
     Indication: MULTIPLE MYELOMA
     Dosage: 90MG Q3WKS
     Dates: start: 19980701, end: 20021201

REACTIONS (10)
  - BONE DISORDER [None]
  - ERYTHEMA [None]
  - LYMPHADENOPATHY [None]
  - ORAL PAIN [None]
  - OSTEOMYELITIS [None]
  - OSTEONECROSIS [None]
  - SEQUESTRECTOMY [None]
  - SWELLING [None]
  - TOOTH EXTRACTION [None]
  - TOOTH IMPACTED [None]
